FAERS Safety Report 12255755 (Version 1)
Quarter: 2016Q2

REPORT INFORMATION
  Report Type: Spontaneous
  Country: US (occurrence: None)
  Receive Date: 20160411
  Receipt Date: 20160411
  Transmission Date: 20160815
  Serious: Yes (Disabling)
  Sender: FDA-Public Use
  Company Number: None

PATIENT
  Age: 60 Year
  Sex: Female
  Weight: 151.5 kg

DRUGS (9)
  1. CONTRAVE [Suspect]
     Active Substance: BUPROPION HYDROCHLORIDE\NALTREXONE HYDROCHLORIDE
     Indication: WEIGHT DECREASED
     Dosage: 3 TABLET (S) IN THE MORNING TAKEN BY MOUTH
     Route: 048
     Dates: start: 20160307, end: 20160309
  2. LOSARTAN. [Concomitant]
     Active Substance: LOSARTAN
  3. VITAMIN D3 [Concomitant]
     Active Substance: CHOLECALCIFEROL
  4. METFORMIN [Concomitant]
     Active Substance: METFORMIN HYDROCHLORIDE
  5. PRAVASTATIN [Concomitant]
     Active Substance: PRAVASTATIN\PRAVASTATIN SODIUM
  6. TTIAMT/HCTZ [Concomitant]
  7. PROGESTERONE. [Concomitant]
     Active Substance: PROGESTERONE
  8. VICTOZA [Concomitant]
     Active Substance: LIRAGLUTIDE
  9. CENTRUM SILVER FOR WOMEN [Concomitant]
     Active Substance: MINERALS\VITAMINS

REACTIONS (3)
  - Nausea [None]
  - Impaired work ability [None]
  - Malaise [None]

NARRATIVE: CASE EVENT DATE: 20160307
